FAERS Safety Report 6239132-4 (Version None)
Quarter: 2009Q2

REPORT INFORMATION
  Report Type: 
  Country: None (occurrence: None)
  Receive Date: 20090618
  Receipt Date: 20090618
  Transmission Date: 20091009
  Serious: Yes (Disabling)
  Sender: FDA-Public Use
  Company Number: None

PATIENT
  Sex: Male
  Weight: 122.4712 kg

DRUGS (1)
  1. ZICAM ALLERGY RELIEF NASEL SPRAY [Suspect]
     Indication: NASAL CONGESTION
     Dosage: 2 SQUEEZES 1 X DAY NOSE
     Route: 045
     Dates: start: 20020201, end: 20050501

REACTIONS (2)
  - ANOSMIA [None]
  - HYPOGEUSIA [None]
